FAERS Safety Report 10346290 (Version 2)
Quarter: 2014Q3

REPORT INFORMATION
  Report Type: Report from Study
  Country: US (occurrence: US)
  Receive Date: 20140728
  Receipt Date: 20140801
  Transmission Date: 20150326
  Serious: Yes (Other)
  Sender: FDA-Public Use
  Company Number: US-ABBVIE-14P-163-1263835-00

PATIENT
  Sex: Female

DRUGS (5)
  1. ADVIL [Concomitant]
     Active Substance: IBUPROFEN
     Indication: HEADACHE
  2. ADVIL [Concomitant]
     Active Substance: IBUPROFEN
     Indication: MIGRAINE
  3. CYMBALTA [Concomitant]
     Active Substance: DULOXETINE HYDROCHLORIDE
     Indication: DEPRESSION
  4. WELLBUTRIN [Concomitant]
     Active Substance: BUPROPION HYDROCHLORIDE
     Indication: DEPRESSION
  5. HUMIRA [Suspect]
     Active Substance: ADALIMUMAB
     Indication: PSORIASIS
     Dates: start: 2010

REACTIONS (13)
  - Joint swelling [Unknown]
  - Cellulitis [Unknown]
  - Depression [Unknown]
  - Mastitis [Unknown]
  - Psoriasis [Unknown]
  - Aphasia [Recovered/Resolved]
  - Tonsillar hypertrophy [Unknown]
  - Migraine [Unknown]
  - Anxiety [Unknown]
  - Cardiac disorder [Unknown]
  - Dysgraphia [Recovered/Resolved]
  - Psoriasis [Unknown]
  - Cerebrovascular accident [Recovered/Resolved]

NARRATIVE: CASE EVENT DATE: 2011
